FAERS Safety Report 24955046 (Version 2)
Quarter: 2025Q2

REPORT INFORMATION
  Report Type: Spontaneous
  Country: US (occurrence: US)
  Receive Date: 20250211
  Receipt Date: 20250424
  Transmission Date: 20250717
  Serious: Yes (Other)
  Sender: PFIZER
  Company Number: US-PFIZER INC-PV202500014788

PATIENT
  Age: 65 Year
  Sex: Female

DRUGS (1)
  1. IBRANCE [Suspect]
     Active Substance: PALBOCICLIB

REACTIONS (9)
  - Malignant neoplasm progression [Unknown]
  - Metastases to bone [Unknown]
  - Diarrhoea [Not Recovered/Not Resolved]
  - Oral pain [Unknown]
  - Alopecia [Unknown]
  - Asthenia [Unknown]
  - Bone pain [Unknown]
  - Neuralgia [Unknown]
  - Nausea [Not Recovered/Not Resolved]
